FAERS Safety Report 6412431-9 (Version None)
Quarter: 2009Q4

REPORT INFORMATION
  Report Type: 
  Country: None (occurrence: None)
  Receive Date: 20091023
  Receipt Date: 20091019
  Transmission Date: 20100525
  Serious: Yes (Hospitalization, Other)
  Sender: FDA-Public Use
  Company Number: US-MERCK-0910USA00731

PATIENT
  Age: 91 Year
  Sex: Female

DRUGS (6)
  1. TRUSOPT [Suspect]
     Indication: GLAUCOMA
     Route: 047
     Dates: start: 19930101
  2. LOMOTIL [Concomitant]
     Route: 065
  3. PLAVIX [Concomitant]
     Route: 065
  4. PENTASA [Concomitant]
     Route: 065
  5. CALCIUM (UNSPECIFIED) [Concomitant]
     Route: 065
  6. VITAMINS (UNSPECIFIED) [Concomitant]
     Route: 065

REACTIONS (11)
  - ADVERSE EVENT [None]
  - BLINDNESS UNILATERAL [None]
  - CROHN'S DISEASE [None]
  - MYALGIA [None]
  - OPTIC ISCHAEMIC NEUROPATHY [None]
  - PNEUMONIA [None]
  - PULMONARY OEDEMA [None]
  - SKELETAL INJURY [None]
  - SPINAL FRACTURE [None]
  - VASCULAR INJURY [None]
  - WEIGHT DECREASED [None]
